FAERS Safety Report 9297052 (Version 1)
Quarter: 2013Q2

REPORT INFORMATION
  Report Type: Spontaneous
  Country: US (occurrence: US)
  Receive Date: 20130519
  Receipt Date: 20130519
  Transmission Date: 20140414
  Serious: No
  Sender: FDA-Public Use
  Company Number: US-009507513-1305USA004530

PATIENT
  Sex: Male

DRUGS (2)
  1. COSOPT PF [Suspect]
     Indication: INTRAOCULAR PRESSURE INCREASED
     Dosage: 2 GTT, QPM(AT NIGHT)
     Route: 047
     Dates: start: 201304, end: 20130430
  2. TRAVATAN [Concomitant]

REACTIONS (3)
  - Eye pain [Recovered/Resolved]
  - Inappropriate schedule of drug administration [Unknown]
  - Wrong technique in drug usage process [Unknown]
